FAERS Safety Report 5121101-9 (Version None)
Quarter: 2006Q4

REPORT INFORMATION
  Report Type: 
  Country: None (occurrence: None)
  Receive Date: 20061002
  Receipt Date: 20060918
  Transmission Date: 20070319
  Serious: Yes (Death, Hospitalization)
  Sender: FDA-Public Use
  Company Number: 2006113029

PATIENT
  Age: 77 Year
  Sex: Male
  Weight: 75 kg

DRUGS (8)
  1. PHENYTOIN [Suspect]
     Indication: CONVULSION
     Dosage: (15 MG/KG), INTRAVENOUS
     Route: 042
  2. CARBAMAZEPINE [Concomitant]
  3. PROCYCLIDINE HYDROCHLORIDE 2MG TAB [Concomitant]
  4. HALOPERIDOL [Concomitant]
  5. CHLORPROMAZINE [Concomitant]
  6. CLONAZEPAM (CHLORAZEPAM) [Concomitant]
  7. DOCUSATE (DOCUSATE) [Concomitant]
  8. SENNOSIDES (SENNOSIDE A + B) [Concomitant]

REACTIONS (2)
  - DEPRESSED LEVEL OF CONSCIOUSNESS [None]
  - INFUSION SITE EXTRAVASATION [None]
